FAERS Safety Report 7510742-7 (Version None)
Quarter: 2011Q2

REPORT INFORMATION
  Report Type: 
  Country: None (occurrence: None)
  Receive Date: 20110530
  Receipt Date: 20110516
  Transmission Date: 20111010
  Serious: Yes (Other)
  Sender: FDA-Public Use
  Company Number: PHHY2011US17513

PATIENT
  Sex: Female

DRUGS (5)
  1. RECLAST [Suspect]
     Dosage: UNK
     Route: 042
  2. VICODIN [Concomitant]
  3. ACETYLSALICYLIC ACID SRT [Concomitant]
  4. CELEXA [Concomitant]
  5. DAYPRO [Concomitant]

REACTIONS (1)
  - LOSS OF CONSCIOUSNESS [None]
